FAERS Safety Report 5907613-6 (Version None)
Quarter: 2008Q4

REPORT INFORMATION
  Report Type: 
  Country: None (occurrence: None)
  Receive Date: 20081002
  Receipt Date: 20081002
  Transmission Date: 20090506
  Serious: Yes (Other)
  Sender: FDA-Public Use
  Company Number: None

PATIENT
  Age: 62 Year
  Sex: Female
  Weight: 79.3795 kg

DRUGS (1)
  1. NASONEX [Suspect]
     Dosage: 1 SQUIRT IN EACH NOSTRIL ONCE DAILY
     Route: 045
     Dates: start: 20080624, end: 20080626

REACTIONS (1)
  - ANOSMIA [None]
